FAERS Safety Report 20376154 (Version 1)
Quarter: 2022Q1

REPORT INFORMATION
  Report Type: Spontaneous
  Country: US (occurrence: None)
  Receive Date: 20220125
  Receipt Date: 20220125
  Transmission Date: 20220423
  Serious: Yes (Disabling)
  Sender: FDA-Public Use
  Company Number: None

PATIENT
  Age: 54 Year
  Sex: Male
  Weight: 114.75 kg

DRUGS (7)
  1. BUMETANIDE [Suspect]
     Active Substance: BUMETANIDE
     Indication: Oedema peripheral
     Dosage: OTHER QUANTITY : 1 TABLET(S);?FREQUENCY : TWICE A DAY;?
     Route: 048
     Dates: start: 20220106
  2. INSULIN (HUMULIN u -500) [Concomitant]
  3. ATORVASTATIN [Concomitant]
     Active Substance: ATORVASTATIN
  4. LOSRTAN [Concomitant]
  5. NARATRIPTAN [Concomitant]
     Active Substance: NARATRIPTAN HYDROCHLORIDE
  6. VITAMINS [Suspect]
     Active Substance: VITAMINS
  7. VITAMIN D. [Concomitant]

REACTIONS (4)
  - Oedema [None]
  - Product quality issue [None]
  - Dyspnoea exertional [None]
  - Drug ineffective [None]

NARRATIVE: CASE EVENT DATE: 20220106
